FAERS Safety Report 7238848-0 (Version None)
Quarter: 2011Q1

REPORT INFORMATION
  Report Type: 
  Country: None (occurrence: None)
  Receive Date: 20110121
  Receipt Date: 20110114
  Transmission Date: 20110831
  Serious: Yes (Hospitalization)
  Sender: FDA-Public Use
  Company Number: JP-SANOFI-AVENTIS-2010SA073971

PATIENT
  Age: 57 Year
  Sex: Male
  Weight: 49.4 kg

DRUGS (11)
  1. MIGLITOL [Suspect]
     Route: 048
     Dates: start: 20100106
  2. OLMETEC [Concomitant]
     Indication: HYPERTENSION
     Route: 048
     Dates: start: 20090820
  3. TAKEPRON [Concomitant]
     Route: 048
     Dates: start: 20090820
  4. ADALAT CC [Concomitant]
     Indication: HYPERTENSION
     Route: 048
     Dates: start: 20090820
  5. MIGLITOL [Suspect]
     Indication: TYPE 2 DIABETES MELLITUS
     Route: 048
     Dates: start: 20090820, end: 20091107
  6. HALCION [Concomitant]
     Indication: INSOMNIA
     Route: 048
     Dates: start: 20090820
  7. URSO 250 [Concomitant]
     Indication: CHOLELITHIASIS
     Route: 048
     Dates: start: 20090820
  8. LANTUS [Suspect]
     Dosage: DOSE:3 UNIT(S)
     Route: 058
     Dates: start: 20100106
  9. NOVORAPID [Suspect]
     Indication: TYPE 2 DIABETES MELLITUS
     Dosage: DOSE:4 UNIT(S)
     Route: 058
     Dates: start: 20090820
  10. LANTUS [Suspect]
     Indication: TYPE 2 DIABETES MELLITUS
     Dosage: DOSE:6 UNIT(S)
     Route: 058
     Dates: start: 20090820, end: 20091107
  11. BASEN [Suspect]
     Route: 048
     Dates: start: 20091109, end: 20100105

REACTIONS (2)
  - HEMIPLEGIA [None]
  - CONVULSION [None]
